FAERS Safety Report 20710615 (Version 2)
Quarter: 2022Q2

REPORT INFORMATION
  Report Type: Report from Study
  Country: CO (occurrence: CO)
  Receive Date: 20220414
  Receipt Date: 20220506
  Transmission Date: 20220720
  Serious: Yes (Other)
  Sender: FDA-Public Use
  Company Number: CO-ABBVIE-22K-036-4357113-00

PATIENT
  Age: 61 Year
  Sex: Female

DRUGS (1)
  1. HUMIRA [Suspect]
     Active Substance: ADALIMUMAB
     Indication: Psoriatic arthropathy
     Route: 058
     Dates: start: 20201009, end: 20220113

REACTIONS (5)
  - Cataract [Recovered/Resolved]
  - Cataract [Recovering/Resolving]
  - Visual impairment [Recovered/Resolved]
  - Corneal disorder [Unknown]
  - Urinary sediment present [Recovering/Resolving]

NARRATIVE: CASE EVENT DATE: 20210801
